FAERS Safety Report 6282550-9 (Version None)
Quarter: 2009Q3

REPORT INFORMATION
  Report Type: 
  Country: None (occurrence: None)
  Receive Date: 20090724
  Receipt Date: 20090715
  Transmission Date: 20100115
  Serious: Yes (Hospitalization)
  Sender: FDA-Public Use
  Company Number: CH-BAYER-200925543GPV

PATIENT
  Age: 48 Year
  Sex: Male

DRUGS (4)
  1. ASPIRIN [Suspect]
     Indication: DRUG USE FOR UNKNOWN INDICATION
     Dosage: TOTAL DAILY DOSE: 100 MG  UNIT DOSE: 100 MG
     Route: 048
     Dates: end: 20090324
  2. DAFALGAN [Concomitant]
     Dosage: TOTAL DAILY DOSE: 4 G
     Route: 048
     Dates: start: 20090315
  3. BECOZYM [Concomitant]
     Dosage: TOTAL DAILY DOSE: 1 DF
     Route: 048
  4. BENERVA [Concomitant]
     Dosage: TOTAL DAILY DOSE: 300 MG
     Route: 048

REACTIONS (5)
  - ANAEMIA [None]
  - GASTRIC ULCER HAEMORRHAGE [None]
  - ILEUS PARALYTIC [None]
  - OEDEMATOUS PANCREATITIS [None]
  - TACHYCARDIA [None]
